FAERS Safety Report 5506781-8 (Version None)
Quarter: 2007Q4

REPORT INFORMATION
  Report Type: 
  Country: None (occurrence: None)
  Receive Date: 20071105
  Receipt Date: 20071024
  Transmission Date: 20080405
  Serious: Yes (Other)
  Sender: FDA-Public Use
  Company Number: US-PFIZER INC-2007090093

PATIENT
  Sex: Female
  Weight: 41.3 kg

DRUGS (6)
  1. LYRICA [Suspect]
     Indication: COMPLEX REGIONAL PAIN SYNDROME
  2. LYRICA [Suspect]
     Indication: CONVULSION
  3. KLONOPIN [Concomitant]
  4. TRAZODONE HCL [Concomitant]
  5. REGLAN [Concomitant]
  6. ADVIL [Concomitant]

REACTIONS (20)
  - ABDOMINAL PAIN [None]
  - ARTHROPATHY [None]
  - BLOOD URINE PRESENT [None]
  - COGNITIVE DISORDER [None]
  - CONFUSIONAL STATE [None]
  - CYSTITIS [None]
  - DIZZINESS [None]
  - EXTRAOCULAR MUSCLE PARESIS [None]
  - KIDNEY INFECTION [None]
  - MALAISE [None]
  - NEPHROLITHIASIS [None]
  - OEDEMA [None]
  - OVARIAN CYST RUPTURED [None]
  - PAIN [None]
  - POLYPECTOMY [None]
  - SCAR [None]
  - STRABISMUS [None]
  - TENDON DISORDER [None]
  - VISION BLURRED [None]
  - WEIGHT INCREASED [None]
